FAERS Safety Report 5964235-9 (Version None)
Quarter: 2008Q4

REPORT INFORMATION
  Report Type: 
  Country: None (occurrence: None)
  Receive Date: 20081124
  Receipt Date: 20081117
  Transmission Date: 20090506
  Serious: Yes (Other)
  Sender: FDA-Public Use
  Company Number: US-PFIZER INC-2008090407

PATIENT
  Sex: Female
  Weight: 72.727 kg

DRUGS (4)
  1. XALATAN [Suspect]
     Indication: GLAUCOMA
     Dates: start: 20081009
  2. THEOPHYLLINE [Concomitant]
  3. VALSARTAN [Concomitant]
  4. VITAMINS [Concomitant]

REACTIONS (5)
  - DENTAL CARIES [None]
  - DENTAL OPERATION [None]
  - GINGIVAL SWELLING [None]
  - INFLAMMATION [None]
  - SWELLING FACE [None]
